FAERS Safety Report 5257041-4 (Version None)
Quarter: 2007Q1

REPORT INFORMATION
  Report Type: 
  Country: None (occurrence: None)
  Receive Date: 20070307
  Receipt Date: 20070222
  Transmission Date: 20070707
  Serious: Yes (Hospitalization, Other)
  Sender: FDA-Public Use
  Company Number: PHBS2006JP20035

PATIENT
  Age: 75 Year
  Sex: Female

DRUGS (13)
  1. AREDIA [Suspect]
     Route: 042
     Dates: start: 20051019, end: 20060620
  2. TAXOTERE [Concomitant]
     Indication: BREAST CANCER
     Dates: start: 20050801
  3. TAXOTERE [Concomitant]
     Dosage: 70 MG/DAY
     Dates: start: 20061128, end: 20061128
  4. KYTRIL [Concomitant]
     Dosage: 3 MG/DAY
     Dates: start: 20050801, end: 20061128
  5. DECADRON /NET/ [Concomitant]
     Dosage: 8 MG/DAY
     Dates: start: 20050801, end: 20061128
  6. AMARYL [Concomitant]
     Indication: DIABETES MELLITUS
     Dosage: 3 MG/DAY
     Route: 048
  7. LORELCO [Concomitant]
     Indication: HYPERLIPIDAEMIA
     Dosage: 500 MG/DAY
     Route: 048
  8. BASEN [Concomitant]
     Indication: DIABETES MELLITUS
     Dosage: 0.6 MG/DAY
     Route: 048
  9. AMLODIPINE [Concomitant]
     Indication: HYPERTENSION
     Dosage: 5 MG/DAY
     Route: 048
  10. BLOPRESS [Concomitant]
     Indication: HYPERTENSION
     Dosage: 8 MG/DAY
     Route: 048
  11. LUPRAC [Concomitant]
     Indication: HYPERTENSION
     Dosage: 4 MG/DAY
     Route: 048
  12. LASIX [Concomitant]
     Indication: HYPERTENSION
     Dosage: 20 MG/DAY
     Route: 048
  13. ZOMETA [Suspect]
     Indication: METASTASES TO BONE
     Dosage: 4 MG
     Route: 042
     Dates: start: 20060620, end: 20061003

REACTIONS (4)
  - BODY TEMPERATURE INCREASED [None]
  - OSTEITIS [None]
  - OSTEONECROSIS [None]
  - SWELLING FACE [None]
